FAERS Safety Report 7349485-1 (Version None)
Quarter: 2011Q1

REPORT INFORMATION
  Report Type: 
  Country: None (occurrence: None)
  Receive Date: 20110314
  Receipt Date: 20100618
  Transmission Date: 20110831
  Serious: No
  Sender: FDA-Public Use
  Company Number: A0866084A

PATIENT
  Age: 10 Year
  Sex: Male

DRUGS (2)
  1. AUGMENTIN XR [Suspect]
     Dosage: 1TBS TWICE PER DAY
     Route: 048
  2. PROBIOTICS [Concomitant]

REACTIONS (2)
  - RASH [None]
  - PRURITUS [None]
